FAERS Safety Report 16090186 (Version 1)
Quarter: 2019Q1

REPORT INFORMATION
  Report Type: Spontaneous
  Country: AU (occurrence: AU)
  Receive Date: 20190319
  Receipt Date: 20190319
  Transmission Date: 20190418
  Serious: Yes (Other)
  Sender: FDA-Public Use
  Company Number: AU-SA-2019SA074292

PATIENT
  Sex: Female
  Weight: 67 kg

DRUGS (1)
  1. ARAVA [Suspect]
     Active Substance: LEFLUNOMIDE
     Dosage: 5 DAYS A WEEK
     Route: 065

REACTIONS (2)
  - Infection [Recovered/Resolved]
  - Neutropenia [Recovered/Resolved]
